FAERS Safety Report 14705140 (Version 2)
Quarter: 2018Q4

REPORT INFORMATION
  Report Type: Spontaneous
  Country: CA (occurrence: CA)
  Receive Date: 20180402
  Receipt Date: 20181221
  Transmission Date: 20190204
  Serious: Yes (Death, Hospitalization)
  Sender: FDA-Public Use
  Company Number: CA-UNITED THERAPEUTICS-UNT-2018-004368

PATIENT
  Age: 52 Year
  Sex: Male

DRUGS (1)
  1. REMODULIN [Suspect]
     Active Substance: TREPROSTINIL
     Indication: PULMONARY ARTERIAL HYPERTENSION
     Dosage: 0.044 ML/HOUR
     Route: 058

REACTIONS (3)
  - Death [Fatal]
  - Haemoptysis [Recovered/Resolved]
  - Device infusion issue [Unknown]

NARRATIVE: CASE EVENT DATE: 20180327
